FAERS Safety Report 7863682-8 (Version None)
Quarter: 2011Q4

REPORT INFORMATION
  Report Type: 
  Country: None (occurrence: None)
  Receive Date: 20111027
  Receipt Date: 20101208
  Transmission Date: 20120403
  Serious: No
  Sender: FDA-Public Use
  Company Number: US-AMGEN-USASP2010008281

PATIENT
  Age: 43 Year
  Sex: Male

DRUGS (1)
  1. ENBREL [Suspect]
     Indication: PSORIATIC ARTHROPATHY
     Dosage: 50 MG, 2 TIMES/WK
     Dates: start: 20101019

REACTIONS (6)
  - DYSPNOEA [None]
  - CHILLS [None]
  - PAIN [None]
  - ABDOMINAL PAIN UPPER [None]
  - FATIGUE [None]
  - DIZZINESS [None]
